FAERS Safety Report 7541612-6 (Version None)
Quarter: 2011Q2

REPORT INFORMATION
  Report Type: 
  Country: None (occurrence: None)
  Receive Date: 20110613
  Receipt Date: 20110601
  Transmission Date: 20111010
  Serious: Yes (Other)
  Sender: FDA-Public Use
  Company Number: JP-ELI_LILLY_AND_COMPANY-JP201106001173

PATIENT
  Age: 62 Year
  Sex: Male

DRUGS (4)
  1. ZYPREXA [Suspect]
     Route: 048
  2. LONGES [Concomitant]
     Route: 048
  3. ASPIRIN [Concomitant]
     Route: 048
  4. ROHYPNOL [Concomitant]
     Route: 048

REACTIONS (2)
  - WATER INTOXICATION [None]
  - HYPONATRAEMIA [None]
